FAERS Safety Report 4842609-7 (Version None)
Quarter: 2005Q4

REPORT INFORMATION
  Report Type: 
  Country: None (occurrence: None)
  Receive Date: 20051201
  Receipt Date: 20051115
  Transmission Date: 20060501
  Serious: Yes (Other)
  Sender: FDA-Public Use
  Company Number: NL-GLAXOSMITHKLINE-B0400548A

PATIENT
  Age: 65 Year
  Sex: Male
  Weight: 78 kg

DRUGS (4)
  1. DUTASTERIDE [Suspect]
     Indication: BENIGN PROSTATIC HYPERPLASIA
     Dosage: 400MG PER DAY
     Route: 048
     Dates: start: 20050118, end: 20050316
  2. PROSCAR [Concomitant]
  3. NEWACE [Concomitant]
  4. ASCAL [Concomitant]

REACTIONS (3)
  - DIZZINESS [None]
  - MALAISE [None]
  - SYNCOPE [None]
